FAERS Safety Report 9321909 (Version 2)
Quarter: 2013Q2

REPORT INFORMATION
  Report Type: Spontaneous
  Country: VE (occurrence: VE)
  Receive Date: 20130531
  Receipt Date: 20130605
  Transmission Date: 20140414
  Serious: Yes (Death)
  Sender: FDA-Public Use
  Company Number: VE-PFIZER INC-2013164585

PATIENT
  Age: 56 Year
  Sex: Male

DRUGS (1)
  1. LIPITOR [Suspect]
     Indication: CEREBROVASCULAR ACCIDENT PROPHYLAXIS
     Dosage: 20 MG, ONCE DAILY
     Route: 048
     Dates: start: 20120605, end: 20130111

REACTIONS (1)
  - Death [Fatal]
